FAERS Safety Report 10270083 (Version 3)
Quarter: 2014Q4

REPORT INFORMATION
  Report Type: Report from Study
  Country: JP (occurrence: None)
  Receive Date: 20140626
  Receipt Date: 20141031
  Transmission Date: 20150528
  Serious: No
  Sender: FDA-Public Use
  Company Number: 2014MPI00762

PATIENT
  Age: 77 Year
  Sex: Male
  Weight: 57.3 kg

DRUGS (5)
  1. ADCETRIS [Suspect]
     Active Substance: BRENTUXIMAB VEDOTIN
     Indication: ANAPLASTIC LARGE-CELL LYMPHOMA
     Dosage: 1.8MG/KG Q28D IV DRIP
     Route: 041
     Dates: start: 20140527, end: 20140725
  2. ACETAMINOPHEN (ACETAMINOPHEN)? [Concomitant]
  3. BACTRAMIN (SULFAMETHOXAZOLE, TRIMETHOPRIM) [Concomitant]
  4. MYCOSYST (FLUCONAZOLE) [Concomitant]
  5. ANTIHISTAMINES [Concomitant]
     Active Substance: ANTIHISTAMINES NOS

REACTIONS (6)
  - Skin disorder [None]
  - Neutrophil count decreased [None]
  - Hyponatraemia [None]
  - Neutropenia [None]
  - Rash generalised [None]
  - Drug eruption [None]

NARRATIVE: CASE EVENT DATE: 20140604
